FAERS Safety Report 18442169 (Version 3)
Quarter: 2020Q4

REPORT INFORMATION
  Report Type: Spontaneous
  Country: US (occurrence: US)
  Receive Date: 20201029
  Receipt Date: 20201223
  Transmission Date: 20210114
  Serious: Yes (Hospitalization, Disabling, Other)
  Sender: FDA-Public Use
  Company Number: US-PURDUE-USA-2020-0170102

PATIENT
  Sex: Female

DRUGS (4)
  1. OXYCONTIN [Suspect]
     Active Substance: OXYCODONE HYDROCHLORIDE
     Indication: PAIN
     Route: 048
  2. OXYCODONE HYDROCHLORIDE (SIMILAR TO NDA 22-272) [Suspect]
     Active Substance: OXYCODONE HYDROCHLORIDE
     Indication: PAIN
     Dosage: 80 MG, TID
     Route: 048
  3. OXYCODONE HYDROCHLORIDE (SIMILAR TO NDA 22-272) [Suspect]
     Active Substance: OXYCODONE HYDROCHLORIDE
     Dosage: 20 MG, TID
     Route: 048
  4. MS CONTIN [Suspect]
     Active Substance: MORPHINE SULFATE
     Indication: PAIN
     Route: 048

REACTIONS (14)
  - Drug dependence [Unknown]
  - Limb discomfort [Not Recovered/Not Resolved]
  - Anxiety [Unknown]
  - Muscle spasms [Unknown]
  - Spinal operation [Unknown]
  - Withdrawal syndrome [Unknown]
  - Drug ineffective [Unknown]
  - Suicidal ideation [Unknown]
  - Disability [Unknown]
  - Gait disturbance [Not Recovered/Not Resolved]
  - Pain [Unknown]
  - Nausea [Unknown]
  - Unevaluable event [Unknown]
  - Insomnia [Unknown]

NARRATIVE: CASE EVENT DATE: 2009
